FAERS Safety Report 16289418 (Version 4)
Quarter: 2019Q3

REPORT INFORMATION
  Report Type: Spontaneous
  Country: US (occurrence: US)
  Receive Date: 20190509
  Receipt Date: 20190704
  Transmission Date: 20191004
  Serious: No
  Sender: FDA-Public Use
  Company Number: US-GW PHARMA-201903USGW0743

PATIENT

DRUGS (5)
  1. EPIDIOLEX [Suspect]
     Active Substance: CANNABIDIOL
     Indication: SEIZURE
  2. EPIDIOLEX [Suspect]
     Active Substance: CANNABIDIOL
     Indication: EPILEPSY
  3. EPIDIOLEX [Suspect]
     Active Substance: CANNABIDIOL
     Indication: FOCAL DYSCOGNITIVE SEIZURES
  4. EPIDIOLEX [Suspect]
     Active Substance: CANNABIDIOL
     Indication: PARTIAL SEIZURES
     Dosage: 560 MILLIGRAM, BID
     Route: 048
     Dates: start: 201901
  5. EPIDIOLEX [Suspect]
     Active Substance: CANNABIDIOL
     Indication: EPILEPSY

REACTIONS (10)
  - Memory impairment [Unknown]
  - Paranoia [Unknown]
  - Ear pain [Unknown]
  - Somnolence [Unknown]
  - Oropharyngeal pain [Unknown]
  - Fatigue [Unknown]
  - Gait disturbance [Unknown]
  - Seizure [Unknown]
  - Balance disorder [Unknown]
  - Off label use [Unknown]

NARRATIVE: CASE EVENT DATE: 2019
